FAERS Safety Report 4568384-1 (Version None)
Quarter: 2005Q1

REPORT INFORMATION
  Report Type: 
  Country: None (occurrence: None)
  Receive Date: 20050131
  Receipt Date: 20050117
  Transmission Date: 20050727
  Serious: Yes (Disabling)
  Sender: FDA-Public Use
  Company Number: 8007667

PATIENT
  Age: 44 Year
  Sex: Female

DRUGS (6)
  1. KEPPRA [Suspect]
     Indication: EPILEPSY
     Dosage: 500 MG 2/D PO
     Route: 048
     Dates: start: 20040706, end: 20040828
  2. KEPPRA [Suspect]
     Indication: EPILEPSY
     Dosage: PO
     Route: 048
  3. TEGRETOL [Concomitant]
  4. CLONAZEPAM [Concomitant]
  5. URBANYL [Concomitant]
  6. LAMICTAL [Concomitant]

REACTIONS (3)
  - ERYTHEMA [None]
  - PRURIGO [None]
  - URTICARIA [None]
